FAERS Safety Report 23015212 (Version 1)
Quarter: 2023Q4

REPORT INFORMATION
  Report Type: Spontaneous
  Country: US (occurrence: None)
  Receive Date: 20231002
  Receipt Date: 20231002
  Transmission Date: 20240110
  Serious: Yes (Hospitalization)
  Sender: FDA-Public Use
  Company Number: None

PATIENT
  Sex: Female

DRUGS (1)
  1. SKYRIZI [Suspect]
     Active Substance: RISANKIZUMAB-RZAA
     Indication: Crohn^s disease
     Dosage: 600MG/10ML INTRAVENOUS??RX1. INFUSE 600MG INTRAVENOUSLY AT WEEK 0, WEEK 4, AND WEEK 8?
     Route: 042
     Dates: start: 20230822

REACTIONS (1)
  - Intestinal obstruction [None]
